FAERS Safety Report 18887486 (Version 1)
Quarter: 2021Q1

REPORT INFORMATION
  Report Type: Spontaneous
  Country: BE (occurrence: BE)
  Receive Date: 20210212
  Receipt Date: 20210212
  Transmission Date: 20210420
  Serious: Yes (Hospitalization)
  Sender: FDA-Public Use
  Company Number: BE-ANIPHARMA-2021-BE-000010

PATIENT
  Age: 58 Year
  Sex: Female
  Weight: 78 kg

DRUGS (13)
  1. HYLO?GEL [Concomitant]
     Dosage: UNKNOWN DOSE AND FREQUENCY
     Route: 065
     Dates: start: 20200706
  2. SIPRALEXA [Concomitant]
     Active Substance: ESCITALOPRAM OXALATE
     Dosage: UNKNOWN DOSE AND FREQUENCY
     Route: 065
     Dates: start: 20200728
  3. CURCUMIN [Concomitant]
     Active Substance: CURCUMIN
     Dosage: UNKNOWN DOSE AND FREQUENCY
     Route: 065
     Dates: start: 20200616
  4. ZOLPIDEM [Concomitant]
     Active Substance: ZOLPIDEM TARTRATE
     Dosage: UNKNOWN DOSE AND FREQUENCY
     Route: 065
     Dates: start: 2014
  5. OMEPRAZOLE. [Concomitant]
     Active Substance: OMEPRAZOLE
     Dosage: UNKNOWN DOSE AND FREQUENCY
     Route: 065
     Dates: start: 20200511
  6. IMODIUM [Concomitant]
     Active Substance: LOPERAMIDE HYDROCHLORIDE
     Dosage: UNKNOWN DOSE AND FREQUENCY
     Route: 065
     Dates: start: 20200907
  7. LETROZOLE. [Suspect]
     Active Substance: LETROZOLE
     Route: 065
     Dates: start: 20190424, end: 20201005
  8. MUCOGYNE [Concomitant]
     Dosage: UNKNOWN DOSE AND FREQUENCY
     Route: 065
     Dates: start: 20200320
  9. ACECLOFENAC [Concomitant]
     Active Substance: ACECLOFENAC
     Dosage: UNKNOWN DOSE AND FREQUENCY
     Route: 065
     Dates: start: 20200515
  10. ABEMACICLIB [Suspect]
     Active Substance: ABEMACICLIB
     Dosage: 300 MG DAILY
     Route: 048
     Dates: start: 20190425
  11. MENTHOL. [Concomitant]
     Active Substance: MENTHOL
     Dosage: UNKNOWN DOSE AND FREQUENCY
     Route: 065
     Dates: start: 20190522
  12. ANASTROZOLE. [Suspect]
     Active Substance: ANASTROZOLE
     Indication: BREAST CANCER
     Dosage: 1 MG DAILY
     Route: 048
     Dates: start: 20201012
  13. DAFALGAN [Concomitant]
     Active Substance: ACETAMINOPHEN
     Dosage: UNKNOWN DOSE AND FREQUENCY
     Route: 065
     Dates: start: 20180914

REACTIONS (1)
  - Erysipelas [Recovered/Resolved]

NARRATIVE: CASE EVENT DATE: 20201214
